FAERS Safety Report 24859774 (Version 3)
Quarter: 2025Q2

REPORT INFORMATION
  Report Type: Report from Study
  Country: FR (occurrence: FR)
  Receive Date: 20250119
  Receipt Date: 20250508
  Transmission Date: 20250716
  Serious: Yes (Life-Threatening)
  Sender: ABBVIE
  Company Number: FR-ABBVIE-6089732

PATIENT
  Age: 71 Year
  Sex: Male
  Weight: 62 kg

DRUGS (16)
  1. FOSCARBIDOPA\FOSLEVODOPA [Suspect]
     Active Substance: FOSCARBIDOPA\FOSLEVODOPA
     Indication: Parkinson^s disease
     Dosage: DURATION OF THE DAILY INFUSION: 24 HOURS/?FLOW RATE: 0.7 ML/H?DAILY DOSE OF FOSLEVODOPA/FOSCARBID...
     Route: 058
     Dates: start: 20250113, end: 20250113
  2. FOSCARBIDOPA\FOSLEVODOPA [Suspect]
     Active Substance: FOSCARBIDOPA\FOSLEVODOPA
     Dosage: DURATION OF THE DAILY INFUSION 24/?FLOW RATE: 0.6 ML/H,?DAILY DOSE OF FOSLEVODOPA/FOSCARBIDOPA: 1...
     Route: 058
     Dates: start: 20250120, end: 20250306
  3. FOSCARBIDOPA\FOSLEVODOPA [Suspect]
     Active Substance: FOSCARBIDOPA\FOSLEVODOPA
     Dosage: BAE FLOW RATE: 0.6 ML/H, DURATION 12 HOURS IN THE MORNING AND AFTERNOON, ?LOW ALTERNATIVE FLOW: 0...
     Route: 058
     Dates: start: 20250114, end: 20250115
  4. FOSCARBIDOPA\FOSLEVODOPA [Suspect]
     Active Substance: FOSCARBIDOPA\FOSLEVODOPA
     Dosage: DURATION OF DAILY INFUSION 24 H/?BASE FLOW RATE: 0.6 ML/H, DURATION 12 HOURS IN MORNING AND AFTER...
     Route: 058
     Dates: start: 20250115, end: 20250117
  5. FOSCARBIDOPA\FOSLEVODOPA [Suspect]
     Active Substance: FOSCARBIDOPA\FOSLEVODOPA
     Dosage: DURATION OF DAILY INFUSION 24 H/?BASE FLOW RATE: 0.6 ML/H, DURATION 14 HOURS IN MORNING AND AFTER...
     Route: 058
     Dates: start: 20250117, end: 20250120
  6. FOSCARBIDOPA\FOSLEVODOPA [Suspect]
     Active Substance: FOSCARBIDOPA\FOSLEVODOPA
     Route: 058
     Dates: start: 20250306, end: 20250430
  7. FOSCARBIDOPA\FOSLEVODOPA [Suspect]
     Active Substance: FOSCARBIDOPA\FOSLEVODOPA
     Route: 058
     Dates: start: 20250430
  8. TEMESTA [Concomitant]
     Indication: Anxiety
     Route: 048
     Dates: start: 20250114, end: 20250125
  9. BENSERAZIDE HYDROCHLORIDE\LEVODOPA [Concomitant]
     Active Substance: BENSERAZIDE HYDROCHLORIDE\LEVODOPA
     Indication: Product used for unknown indication
     Dates: start: 2019
  10. CLOZAPINE [Concomitant]
     Active Substance: CLOZAPINE
     Indication: Product used for unknown indication
     Dates: start: 20250114, end: 20250116
  11. CLOZAPINE [Concomitant]
     Active Substance: CLOZAPINE
     Indication: Product used for unknown indication
     Dates: start: 20250117, end: 20250125
  12. MIRTAZAPINE [Concomitant]
     Active Substance: MIRTAZAPINE
     Indication: Anxiety
     Route: 048
     Dates: start: 20250115, end: 20250120
  13. MIRTAZAPINE [Concomitant]
     Active Substance: MIRTAZAPINE
     Indication: Anxiety
     Route: 048
     Dates: start: 20250120, end: 20250120
  14. MIDAZOLAM [Concomitant]
     Active Substance: MIDAZOLAM
     Indication: Sedation
     Route: 030
     Dates: start: 20250114, end: 20250114
  15. COLCHICINE [Concomitant]
     Active Substance: COLCHICINE
     Indication: Product used for unknown indication
     Dates: start: 20250119
  16. ALLOPURINOL [Concomitant]
     Active Substance: ALLOPURINOL
     Indication: Product used for unknown indication
     Dates: start: 20250124, end: 20250125

REACTIONS (1)
  - Suicide attempt [Recovered/Resolved]

NARRATIVE: CASE EVENT DATE: 20250114
